FAERS Safety Report 18373520 (Version 1)
Quarter: 2020Q4

REPORT INFORMATION
  Report Type: Spontaneous
  Country: PL (occurrence: PL)
  Receive Date: 20201012
  Receipt Date: 20201012
  Transmission Date: 20210114
  Serious: Yes (Other)
  Sender: FDA-Public Use
  Company Number: PL-ALLERGAN-2037458US

PATIENT
  Sex: Female

DRUGS (2)
  1. LEVONORGESTREL - BP [Suspect]
     Active Substance: LEVONORGESTREL
     Indication: MENORRHAGIA
  2. LEVONORGESTREL - BP [Suspect]
     Active Substance: LEVONORGESTREL
     Indication: CONTRACEPTION
     Dosage: 52 MG, DAILY DOSE, AT AN INITIAL RELEASE RATE OF 20 MICROGRAM PER 24 HOURS
     Route: 015
     Dates: start: 20200730, end: 20200908

REACTIONS (3)
  - Uterine leiomyoma [Recovered/Resolved]
  - Device expulsion [Recovered/Resolved]
  - Vaginal haemorrhage [Recovered/Resolved]

NARRATIVE: CASE EVENT DATE: 20200908
